FAERS Safety Report 8017629-4 (Version None)
Quarter: 2012Q1

REPORT INFORMATION
  Report Type: 
  Country: None (occurrence: None)
  Receive Date: 20120103
  Receipt Date: 20111221
  Transmission Date: 20120608
  Serious: Yes (Other)
  Sender: FDA-Public Use
  Company Number: MX-ELI_LILLY_AND_COMPANY-MX201112007086

PATIENT
  Sex: Male

DRUGS (1)
  1. FORTEO [Suspect]
     Indication: FRACTURE
     Dosage: UNK
     Route: 058
     Dates: start: 20110501

REACTIONS (2)
  - OFF LABEL USE [None]
  - BONE OPERATION [None]
